FAERS Safety Report 4520234-5 (Version None)
Quarter: 2004Q4

REPORT INFORMATION
  Report Type: 
  Country: None (occurrence: None)
  Receive Date: 20041025
  Receipt Date: 20040818
  Transmission Date: 20050328
  Serious: Yes (Hospitalization, Other)
  Sender: FDA-Public Use
  Company Number: USA040874403

PATIENT
  Age: 80 Year
  Sex: Male
  Weight: 78 kg

DRUGS (5)
  1. SYMBYAX [Suspect]
     Indication: BIPOLAR DISORDER
     Dates: start: 20040712
  2. ZOCOR [Concomitant]
  3. GLYBURIDE [Concomitant]
  4. MULTI-VITAMIN [Concomitant]
  5. FIORINAL [Concomitant]

REACTIONS (1)
  - AGGRESSION [None]
